FAERS Safety Report 11461045 (Version 1)
Quarter: 2015Q3

REPORT INFORMATION
  Report Type: Spontaneous
  Country: US (occurrence: US)
  Receive Date: 20150904
  Receipt Date: 20150904
  Transmission Date: 20151125
  Serious: No
  Sender: FDA-Public Use
  Company Number: US-LUNDBECK-DKLU2003274

PATIENT
  Age: 89 Year
  Sex: Male

DRUGS (2)
  1. NORTHERA [Suspect]
     Active Substance: DROXIDOPA
     Indication: PRODUCT USED FOR UNKNOWN INDICATION
     Route: 065
  2. NORTHERA [Suspect]
     Active Substance: DROXIDOPA
     Route: 065
     Dates: start: 20150818

REACTIONS (5)
  - Nausea [Unknown]
  - Hypertension [Unknown]
  - Head discomfort [Unknown]
  - Confusional state [Unknown]
  - Memory impairment [Unknown]

NARRATIVE: CASE EVENT DATE: 20150816
